FAERS Safety Report 4880904-6 (Version None)
Quarter: 2005Q4

REPORT INFORMATION
  Report Type: 
  Country: None (occurrence: None)
  Receive Date: 20051223
  Receipt Date: 20051102
  Transmission Date: 20060501
  Serious: No
  Sender: FDA-Public Use
  Company Number: 05P-163-0316302-00

PATIENT
  Age: 63 Year
  Sex: Female
  Weight: 63.05 kg

DRUGS (7)
  1. HUMIRA [Suspect]
     Indication: RHEUMATOID ARTHRITIS
     Dosage: 40 MG, 1 IN 2 WK, SUBCUTANEOUS
     Route: 058
     Dates: start: 20050101, end: 20051001
  2. HUMIRA [Suspect]
     Indication: RHEUMATOID ARTHRITIS
     Dosage: 40 MG, 1 IN 2 WK, SUBCUTANEOUS
     Route: 058
     Dates: start: 20051101
  3. CORTISONE ACETATE TAB [Concomitant]
  4. METHOTREXATE SODIUM [Concomitant]
  5. RABEPRAZOLE SODIUM [Concomitant]
  6. GABAPENTIN [Concomitant]
  7. PREDNISONE [Concomitant]

REACTIONS (4)
  - GASTRITIS [None]
  - INJECTION SITE IRRITATION [None]
  - INJECTION SITE RASH [None]
  - RASH [None]
